FAERS Safety Report 9378864 (Version 2)
Quarter: 2013Q3

REPORT INFORMATION
  Report Type: Spontaneous
  Country: US (occurrence: US)
  Receive Date: 20130702
  Receipt Date: 20130822
  Transmission Date: 20140515
  Serious: No
  Sender: FDA-Public Use
  Company Number: US-PFIZER INC-2013194299

PATIENT
  Sex: Male

DRUGS (2)
  1. LYRICA [Suspect]
     Indication: PAIN
     Dosage: 50 MG, UNK
     Route: 048
  2. LYRICA [Suspect]
     Dosage: 100 MG, UNK
     Route: 048

REACTIONS (1)
  - Drug ineffective [Unknown]
